FAERS Safety Report 16866877 (Version 1)
Quarter: 2019Q3

REPORT INFORMATION
  Report Type: Report from Study
  Country: None (occurrence: BR)
  Receive Date: 20190930
  Receipt Date: 20190930
  Transmission Date: 20191005
  Serious: Yes (Other)
  Sender: FDA-Public Use
  Company Number: BR-ABBVIE-19K-020-2943605-00

PATIENT
  Sex: Male
  Weight: 64 kg

DRUGS (1)
  1. HUMIRA [Suspect]
     Active Substance: ADALIMUMAB
     Indication: RHEUMATOID ARTHRITIS
     Route: 058
     Dates: start: 20130624, end: 201907

REACTIONS (2)
  - Abdominal pain [Recovering/Resolving]
  - Rectal stenosis [Recovering/Resolving]

NARRATIVE: CASE EVENT DATE: 2017
